FAERS Safety Report 17672494 (Version 2)
Quarter: 2020Q2

REPORT INFORMATION
  Report Type: Spontaneous
  Country: AU (occurrence: AU)
  Receive Date: 20200415
  Receipt Date: 20200507
  Transmission Date: 20200713
  Serious: Yes (Other)
  Sender: FDA-Public Use
  Company Number: AU-GILEAD-2020-0459026

PATIENT
  Age: 78 Year
  Sex: Male

DRUGS (2)
  1. TENOFOVIR DISOPROXIL FUMARATE. [Suspect]
     Active Substance: TENOFOVIR DISOPROXIL FUMARATE
     Indication: HEPATITIS B
     Route: 065
  2. ENTECAVIR. [Concomitant]
     Active Substance: ENTECAVIR

REACTIONS (2)
  - Blood creatinine increased [Unknown]
  - Hepatic cirrhosis [Unknown]
